FAERS Safety Report 6847939-5 (Version None)
Quarter: 2010Q3

REPORT INFORMATION
  Report Type: 
  Country: None (occurrence: None)
  Receive Date: 20100715
  Receipt Date: 20100423
  Transmission Date: 20110219
  Serious: No
  Sender: FDA-Public Use
  Company Number: DL2010-0355

PATIENT
  Age: 20 Year
  Sex: Female

DRUGS (3)
  1. MIFEPRISTONE (MIFEPREX) [Suspect]
     Indication: ABORTION INDUCED
     Dosage: 200 MG, ORAL
     Route: 048
     Dates: start: 20100210
  2. MISOPROSTOL [Suspect]
     Dosage: 800 MCG, BUCCAL
     Route: 002
     Dates: start: 20100211
  3. DOXYCYCLINE [Concomitant]

REACTIONS (3)
  - ABDOMINAL PAIN [None]
  - ABORTION INCOMPLETE [None]
  - HAEMORRHAGE [None]
